FAERS Safety Report 6805627-5 (Version None)
Quarter: 2010Q2

REPORT INFORMATION
  Report Type: 
  Country: None (occurrence: None)
  Receive Date: 20100628
  Receipt Date: 20071228
  Transmission Date: 20101027
  Serious: No
  Sender: FDA-Public Use
  Company Number: US-PFIZER INC-2007066092

PATIENT
  Sex: Male
  Weight: 56.7 kg

DRUGS (2)
  1. GEODON [Suspect]
     Indication: OBSESSIVE-COMPULSIVE DISORDER
     Dates: start: 20070701
  2. LEXAPRO [Concomitant]
     Dates: start: 20070701

REACTIONS (2)
  - DIZZINESS [None]
  - SOMNOLENCE [None]
